FAERS Safety Report 7426799-8 (Version None)
Quarter: 2011Q2

REPORT INFORMATION
  Report Type: 
  Country: None (occurrence: None)
  Receive Date: 20110420
  Receipt Date: 20110412
  Transmission Date: 20111010
  Serious: Yes (Hospitalization)
  Sender: FDA-Public Use
  Company Number: PHHY2011US32126

PATIENT
  Age: 11 Year
  Sex: Male

DRUGS (4)
  1. LAMOTRIGINE [Suspect]
     Dosage: 4 MG/KG, DAILY
  2. LAMOTRIGINE [Suspect]
     Indication: PETIT MAL EPILEPSY
     Dosage: 5.5 MG/KG, DAILY
  3. LAMOTRIGINE [Suspect]
     Dosage: 7 MG/KG, DAILY
  4. VALPROATE SODIUM [Concomitant]
     Dosage: UNK UKN, UNK

REACTIONS (6)
  - GAZE PALSY [None]
  - TOXICITY TO VARIOUS AGENTS [None]
  - OVERDOSE [None]
  - OCULOGYRIC CRISIS [None]
  - STARING [None]
  - EXCESSIVE EYE BLINKING [None]
